FAERS Safety Report 8593791-X (Version None)
Quarter: 2012Q3

REPORT INFORMATION
  Report Type: 
  Country: None (occurrence: None)
  Receive Date: 20120814
  Receipt Date: 20120806
  Transmission Date: 20120928
  Serious: Yes (Life-Threatening)
  Sender: FDA-Public Use
  Company Number: FR-BAXTER-2012BAX013703

PATIENT
  Sex: Female

DRUGS (6)
  1. MABTHERA [Suspect]
     Indication: FOLLICLE CENTRE LYMPHOMA, FOLLICULAR GRADE I, II, III STAGE IV
     Route: 042
     Dates: start: 20120622
  2. DEPAMIDE [Concomitant]
     Route: 065
  3. DOXORUBICIN HYDROCHLORIDE [Suspect]
     Indication: FOLLICLE CENTRE LYMPHOMA, FOLLICULAR GRADE I, II, III STAGE IV
     Route: 042
     Dates: start: 20120622
  4. RABEPRAZOLE SODIUM [Concomitant]
     Route: 065
  5. CYCLOPHOSPHAMIDE [Suspect]
     Indication: FOLLICLE CENTRE LYMPHOMA, FOLLICULAR GRADE I, II, III STAGE IV
     Route: 042
     Dates: start: 20120622
  6. ETOPOSIDE [Suspect]
     Indication: FOLLICLE CENTRE LYMPHOMA, FOLLICULAR GRADE I, II, III STAGE IV
     Route: 042
     Dates: start: 20120622

REACTIONS (1)
  - CIRCULATORY COLLAPSE [None]
